FAERS Safety Report 6369135-0 (Version None)
Quarter: 2009Q3

REPORT INFORMATION
  Report Type: 
  Country: None (occurrence: None)
  Receive Date: 20090917
  Receipt Date: 20090917
  Transmission Date: 20100115
  Serious: Yes (Life-Threatening, Hospitalization, Other)
  Sender: FDA-Public Use
  Company Number: None

PATIENT
  Age: 23 Year
  Sex: Female
  Weight: 63.5036 kg

DRUGS (1)
  1. YAZ [Suspect]
     Indication: ACNE
     Dosage: 1 PILL DAILY PO  A LITTLE OVER 2 YEARS
     Route: 048
     Dates: start: 20070717, end: 20090814

REACTIONS (1)
  - CEREBROVASCULAR ACCIDENT [None]
